FAERS Safety Report 22589814 (Version 1)
Quarter: 2023Q2

REPORT INFORMATION
  Report Type: Spontaneous
  Country: CN (occurrence: CN)
  Receive Date: 20230612
  Receipt Date: 20230612
  Transmission Date: 20230722
  Serious: Yes (Hospitalization, Other)
  Sender: FDA-Public Use
  Company Number: CN-ELI_LILLY_AND_COMPANY-CN202306002170

PATIENT
  Age: 66 Year
  Sex: Male
  Weight: 77 kg

DRUGS (8)
  1. PEMETREXED [Suspect]
     Active Substance: PEMETREXED
     Indication: Lung adenocarcinoma
     Dosage: 0.8 G, CYCLE 1, CYCLICAL
     Route: 065
     Dates: start: 20201230
  2. PEMETREXED [Suspect]
     Active Substance: PEMETREXED
     Dosage: 0.8 G, 2,3 AND 4 CYCLES
     Route: 065
  3. CISPLATIN [Suspect]
     Active Substance: CISPLATIN
     Indication: Lung adenocarcinoma
     Dosage: 120 MG, CYCLE 1, CYCLICAL
     Route: 065
     Dates: start: 20201230
  4. BEVACIZUMAB [Suspect]
     Active Substance: BEVACIZUMAB
     Indication: Lung adenocarcinoma
     Dosage: 500 MG, CYCLE 1, CYCLICAL
     Route: 065
     Dates: start: 20201230
  5. BEVACIZUMAB [Suspect]
     Active Substance: BEVACIZUMAB
     Dosage: 500 MG, CYCLES 2, 3 AND 4 CYCLICAL
     Route: 065
  6. CAMRELIZUMAB [Suspect]
     Active Substance: CAMRELIZUMAB
     Indication: Lung adenocarcinoma
     Dosage: 200 MG, CYCLE 1
     Route: 065
     Dates: start: 20201230
  7. CAMRELIZUMAB [Suspect]
     Active Substance: CAMRELIZUMAB
     Dosage: 200 MG, CYCLE 2,3 AND 4
     Route: 065
     Dates: end: 20210306
  8. NEDAPLATIN [Suspect]
     Active Substance: NEDAPLATIN
     Indication: Lung adenocarcinoma
     Dosage: 130 MG,CYCLES 2,3 AND 4
     Route: 065

REACTIONS (3)
  - Diabetic ketoacidosis [Unknown]
  - Anaemia [Unknown]
  - Blood glucose increased [Recovered/Resolved]

NARRATIVE: CASE EVENT DATE: 20210328
